FAERS Safety Report 14586886 (Version 1)
Quarter: 2018Q1

REPORT INFORMATION
  Report Type: Spontaneous
  Country: US (occurrence: US)
  Receive Date: 20180228
  Receipt Date: 20180228
  Transmission Date: 20180509
  Serious: Yes (Other)
  Sender: FDA-Public Use
  Company Number: None

PATIENT
  Age: 50 Year
  Sex: Female
  Weight: 56.25 kg

DRUGS (3)
  1. HYDROCORTISONE. [Suspect]
     Active Substance: HYDROCORTISONE
  2. VI PEEL (ASCORBIC ACID\PHENOL\TRETINOIN\TRICHLOROACETIC ACID\SALICYLIC ACID) [Suspect]
     Active Substance: ASCORBIC ACID\PHENOL\TRETINOIN\TRICHLOROACETIC ACID\SALICYLIC ACID
     Indication: SKIN EXFOLIATION
     Dosage: 1 5ML + TOWLETTES; TOPICAL
     Route: 061
  3. BENZOYL PEROXIDE. [Suspect]
     Active Substance: BENZOYL PEROXIDE

REACTIONS (2)
  - Product use issue [None]
  - Chemical burn of skin [None]

NARRATIVE: CASE EVENT DATE: 20170908
